FAERS Safety Report 22020496 (Version 2)
Quarter: 2023Q1

REPORT INFORMATION
  Report Type: Spontaneous
  Country: GB (occurrence: GB)
  Receive Date: 20230222
  Receipt Date: 20230317
  Transmission Date: 20230418
  Serious: Yes (Other)
  Sender: FDA-Public Use
  Company Number: GB-SA-SAC20230221000218

PATIENT
  Sex: Female

DRUGS (1)
  1. KEVZARA [Suspect]
     Active Substance: SARILUMAB
     Indication: Rheumatoid arthritis
     Dosage: 200 MG, QOW
     Route: 058

REACTIONS (4)
  - Rheumatoid arthritis [Unknown]
  - Joint stiffness [Unknown]
  - Arthralgia [Unknown]
  - Inappropriate schedule of product administration [Unknown]
